FAERS Safety Report 7383358-3 (Version None)
Quarter: 2011Q1

REPORT INFORMATION
  Report Type: 
  Country: None (occurrence: None)
  Receive Date: 20110330
  Receipt Date: 20110316
  Transmission Date: 20110831
  Serious: Yes (Hospitalization)
  Sender: FDA-Public Use
  Company Number: US-JNJFOC-20110202034

PATIENT
  Sex: Female
  Weight: 10.9 kg

DRUGS (11)
  1. PREVACID [Concomitant]
  2. IRON [Concomitant]
  3. ALBUTEROL [Concomitant]
  4. LEUKINE [Concomitant]
  5. MUPIROCIN [Concomitant]
  6. ANTIBIOTICS [Concomitant]
  7. TPN [Concomitant]
  8. CEFEPIME [Concomitant]
  9. REMICADE [Suspect]
     Indication: CROHN'S DISEASE
     Route: 042
  10. LEUKINE [Concomitant]
  11. ACETAMINOPHEN [Concomitant]

REACTIONS (2)
  - URINARY TRACT INFECTION [None]
  - DEVICE RELATED INFECTION [None]
